FAERS Safety Report 8500606-4 (Version None)
Quarter: 2012Q3

REPORT INFORMATION
  Report Type: 
  Country: None (occurrence: None)
  Receive Date: 20120710
  Receipt Date: 20120705
  Transmission Date: 20120928
  Serious: Yes (Hospitalization)
  Sender: FDA-Public Use
  Company Number: US-ROCHE-1070273

PATIENT
  Sex: Female

DRUGS (3)
  1. RIBAVIRIN [Suspect]
     Indication: HEPATITIS C
     Dosage: DIVIDED DOSES
     Route: 048
     Dates: start: 20120411
  2. TELAPREVIR [Suspect]
     Indication: HEPATITIS C
     Dates: start: 20120411
  3. PEGASYS [Suspect]
     Indication: HEPATITIS C
     Route: 058
     Dates: start: 20120411

REACTIONS (4)
  - FATIGUE [None]
  - NASOPHARYNGITIS [None]
  - DEHYDRATION [None]
  - GASTRIC DISORDER [None]
